FAERS Safety Report 7156922-4 (Version None)
Quarter: 2010Q4

REPORT INFORMATION
  Report Type: 
  Country: None (occurrence: None)
  Receive Date: 20101214
  Receipt Date: 20101202
  Transmission Date: 20110411
  Serious: Yes (Other)
  Sender: FDA-Public Use
  Company Number: PHHY2010BR37035

PATIENT
  Sex: Female

DRUGS (3)
  1. SANDOSTATIN [Suspect]
     Indication: DIARRHOEA
     Dosage: 0.1 MG, Q12H
     Dates: start: 20000101
  2. SANDOSTATIN [Suspect]
     Dosage: 0.1 MG, Q12H
     Dates: start: 20010101
  3. SANDOSTATIN [Suspect]
     Dosage: 0.1 MG, Q12H
     Dates: start: 20050101

REACTIONS (2)
  - DIARRHOEA [None]
  - POLYNEUROPATHY [None]
